FAERS Safety Report 11198301 (Version 1)
Quarter: 2015Q2

REPORT INFORMATION
  Report Type: Spontaneous
  Country: US (occurrence: US)
  Receive Date: 20150618
  Receipt Date: 20150618
  Transmission Date: 20150821
  Serious: No
  Sender: FDA-Public Use
  Company Number: US-ASTRAZENECA-2006BM18521

PATIENT
  Age: 20082 Day
  Sex: Female
  Weight: 95.3 kg

DRUGS (10)
  1. FARXIGA [Suspect]
     Active Substance: DAPAGLIFLOZIN PROPANEDIOL
     Indication: DIABETES MELLITUS
     Route: 048
  2. OMEPRAZOLE. [Suspect]
     Active Substance: OMEPRAZOLE
     Route: 048
  3. ASACOL [Concomitant]
     Active Substance: MESALAMINE
     Dosage: UNK
  4. GLUCOPHAGE ^BRISTOL-MYERS SQUIBB^ [Concomitant]
     Indication: TYPE 2 DIABETES MELLITUS
     Route: 048
  5. AMARYL [Concomitant]
     Active Substance: GLIMEPIRIDE
     Route: 048
     Dates: start: 20061117
  6. METOPROLOL [Concomitant]
     Active Substance: METOPROLOL
  7. BENZAPRIL [Concomitant]
     Active Substance: BENAZEPRIL\BENAZEPRIL HYDROCHLORIDE
  8. AMLODOPINE [Concomitant]
  9. BYETTA [Suspect]
     Active Substance: EXENATIDE
     Indication: TYPE 2 DIABETES MELLITUS
     Dosage: (0.25 MG/ML), 5 UG, TWO TIMES A DAY
     Route: 058
     Dates: start: 20061117
  10. LEVEMIR [Suspect]
     Active Substance: INSULIN DETEMIR

REACTIONS (5)
  - Drug ineffective [Unknown]
  - Dizziness [Not Recovered/Not Resolved]
  - Headache [Not Recovered/Not Resolved]
  - Dehydration [Unknown]
  - Nausea [Not Recovered/Not Resolved]

NARRATIVE: CASE EVENT DATE: 20061117
